FAERS Safety Report 7915122-8 (Version None)
Quarter: 2011Q4

REPORT INFORMATION
  Report Type: 
  Country: None (occurrence: None)
  Receive Date: 20111115
  Receipt Date: 20111111
  Transmission Date: 20120403
  Serious: Yes (Other)
  Sender: FDA-Public Use
  Company Number: NL-ABBOTT-11P-114-0860296-00

PATIENT
  Sex: Female
  Weight: 70 kg

DRUGS (7)
  1. FEXOFENADINE [Concomitant]
     Indication: HOUSE DUST ALLERGY
     Route: 048
     Dates: start: 19990101
  2. TIOTROPIUM [Concomitant]
     Indication: CHRONIC OBSTRUCTIVE PULMONARY DISEASE
     Route: 055
     Dates: start: 19990101
  3. METHOTREXATE [Concomitant]
     Indication: RHEUMATOID ARTHRITIS
     Route: 048
     Dates: start: 20080101
  4. FENPROCOUMON [Concomitant]
     Indication: ARRHYTHMIA
     Dosage: ACCORDING TO SCHEDULE
     Route: 048
     Dates: start: 20100101
  5. FOLIC ACID [Concomitant]
     Indication: RHEUMATOID ARTHRITIS
     Route: 048
     Dates: start: 20080101
  6. HUMIRA [Suspect]
     Indication: RHEUMATOID ARTHRITIS
     Route: 058
     Dates: start: 20110902
  7. SALMETEROL/FLUTCASON AEROSOL [Concomitant]
     Indication: CHRONIC OBSTRUCTIVE PULMONARY DISEASE
     Dosage: 25/250UG/DO 120DO
     Route: 055
     Dates: start: 19990101

REACTIONS (2)
  - ARRHYTHMIA [None]
  - PLATELET COUNT ABNORMAL [None]
